FAERS Safety Report 9126097 (Version 1)
Quarter: 2013Q1

REPORT INFORMATION
  Report Type: Spontaneous
  Country: US (occurrence: US)
  Receive Date: 20130121
  Receipt Date: 20130121
  Transmission Date: 20140127
  Serious: No
  Sender: FDA-Public Use
  Company Number: US-MYLANLABS-2012S1010681

PATIENT
  Age: 83 Year
  Sex: Male

DRUGS (2)
  1. FINASTERIDE [Suspect]
     Indication: HYPERTONIC BLADDER
     Route: 048
     Dates: start: 201204
  2. ANTIGLAUCOMA PREPARATIONS AND MIOTICS [Concomitant]
     Indication: GLAUCOMA

REACTIONS (5)
  - Drug ineffective for unapproved indication [Not Recovered/Not Resolved]
  - Hypertonic bladder [Not Recovered/Not Resolved]
  - Dizziness [Not Recovered/Not Resolved]
  - Balance disorder [Not Recovered/Not Resolved]
  - Constipation [Not Recovered/Not Resolved]
